FAERS Safety Report 7025191-8 (Version None)
Quarter: 2010Q4

REPORT INFORMATION
  Report Type: 
  Country: None (occurrence: None)
  Receive Date: 20101001
  Receipt Date: 20100921
  Transmission Date: 20110411
  Serious: Yes (Other)
  Sender: FDA-Public Use
  Company Number: US-PFIZER INC-2010120555

PATIENT
  Sex: Male
  Weight: 97.506 kg

DRUGS (5)
  1. DILANTIN [Suspect]
     Indication: PAIN IN JAW
     Dosage: UNK
     Route: 042
     Dates: start: 20100501, end: 20100101
  2. DILANTIN [Suspect]
     Dosage: 100 MG, 3X/DAY
     Dates: start: 20100101, end: 20100101
  3. ZEGERID [Concomitant]
     Indication: DYSPEPSIA
     Dosage: UNK
  4. AVODART [Concomitant]
     Indication: PROSTATIC DISORDER
     Dosage: UNK
  5. CENTRUM SILVER [Concomitant]
     Dosage: UNK

REACTIONS (4)
  - ACTIVITIES OF DAILY LIVING IMPAIRED [None]
  - DRUG INTOLERANCE [None]
  - PAIN IN JAW [None]
  - SLEEP DISORDER [None]
